FAERS Safety Report 4774302-3 (Version None)
Quarter: 2005Q3

REPORT INFORMATION
  Report Type: 
  Country: None (occurrence: None)
  Receive Date: 20050914
  Receipt Date: 20050304
  Transmission Date: 20060218
  Serious: Yes (Death)
  Sender: FDA-Public Use
  Company Number: 163-20785-05030136

PATIENT
  Age: 92 Year
  Sex: Female

DRUGS (2)
  1. THALOMID [Suspect]
     Indication: MULTIPLE MYELOMA
     Dosage: 50 MG, QHS, ORAL
     Route: 048
     Dates: start: 20020201, end: 20040101
  2. THALOMID [Suspect]
     Indication: MULTIPLE MYELOMA
     Dosage: 50 MG, QHS, ORAL
     Route: 048
     Dates: start: 20050112, end: 20050301

REACTIONS (5)
  - BRONCHITIS ACUTE [None]
  - CEREBROVASCULAR ACCIDENT [None]
  - DEATH [None]
  - DYSPNOEA [None]
  - MYOCARDIAL INFARCTION [None]
